FAERS Safety Report 5790581-8 (Version None)
Quarter: 2008Q2

REPORT INFORMATION
  Report Type: 
  Country: None (occurrence: None)
  Receive Date: 20080626
  Receipt Date: 20080501
  Transmission Date: 20081010
  Serious: No
  Sender: FDA-Public Use
  Company Number: A0725791A

PATIENT
  Age: 71 Year
  Sex: Female

DRUGS (3)
  1. ALLI [Suspect]
     Route: 048
     Dates: start: 20080301, end: 20080410
  2. DIABETES MEDICATION [Concomitant]
  3. HEART MEDICATION [Concomitant]

REACTIONS (2)
  - DIARRHOEA [None]
  - STEATORRHOEA [None]
